FAERS Safety Report 15782179 (Version 1)
Quarter: 2019Q1

REPORT INFORMATION
  Report Type: Spontaneous
  Country: FR (occurrence: FR)
  Receive Date: 20190102
  Receipt Date: 20190102
  Transmission Date: 20190417
  Serious: Yes (Hospitalization)
  Sender: FDA-Public Use
  Company Number: FR-ANIPHARMA-2018-FR-000203

PATIENT
  Age: 16 Year
  Sex: Female

DRUGS (3)
  1. RISPERIDONE (NON-SPECIFIC) [Suspect]
     Active Substance: RISPERIDONE
     Indication: HALLUCINATION, AUDITORY
     Dosage: 1 MG DAILY
     Dates: start: 201611
  2. SALBUTAMOL [Concomitant]
     Active Substance: ALBUTEROL
     Dosage: USED AS NEEDED
  3. BECLOMETHASONE/FORMOTEROL [Concomitant]
     Dosage: 100/6 MICROGRAM TWICE A DAY

REACTIONS (2)
  - Weight increased [Unknown]
  - Intracranial pressure increased [Recovered/Resolved]

NARRATIVE: CASE EVENT DATE: 201703
